FAERS Safety Report 20602150 (Version 1)
Quarter: 2022Q1

REPORT INFORMATION
  Report Type: Spontaneous
  Country: US (occurrence: None)
  Receive Date: 20220315
  Receipt Date: 20220315
  Transmission Date: 20220423
  Serious: Yes (Other)
  Sender: FDA-Public Use
  Company Number: None

PATIENT
  Age: 69 Year
  Sex: Male
  Weight: 112.5 kg

DRUGS (4)
  1. FLUOROURACIL [Suspect]
     Active Substance: FLUOROURACIL
     Indication: Skin cancer
     Dosage: FREQUENCY : TWICE A DAY;?
     Route: 061
     Dates: start: 20220309, end: 20220313
  2. ALCLOMETASONE DIPROPIONATE [Suspect]
     Active Substance: ALCLOMETASONE DIPROPIONATE
  3. LYSINOPRIL [Concomitant]
  4. MULTIVITAMIN D, C [Concomitant]

REACTIONS (4)
  - Pain [None]
  - Erythema [None]
  - Insomnia [None]
  - Photophobia [None]

NARRATIVE: CASE EVENT DATE: 20220315
